FAERS Safety Report 24341383 (Version 1)
Quarter: 2024Q3

REPORT INFORMATION
  Report Type: Report from Study
  Country: JP (occurrence: JP)
  Receive Date: 20240920
  Receipt Date: 20240920
  Transmission Date: 20241017
  Serious: Yes (Other)
  Sender: ACCORD
  Company Number: JP-Accord-446717

PATIENT

DRUGS (3)
  1. FLUOROURACIL [Suspect]
     Active Substance: FLUOROURACIL
     Indication: Oesophageal adenosquamous carcinoma
     Dosage: ADMINISTERED BY CONTINUOUS INTRAVENOUS INFUSION ON DAYS 1 THROUGH 5
     Route: 042
  2. CISPLATIN [Suspect]
     Active Substance: CISPLATIN
     Indication: Oesophageal adenosquamous carcinoma
     Dosage: ADMINISTERED BY RAPID INFUSION ON DAY 1
  3. PEMBROLIZUMAB [Suspect]
     Active Substance: PEMBROLIZUMAB
     Indication: Oesophageal adenosquamous carcinoma

REACTIONS (1)
  - Hypokalaemia [Unknown]
